FAERS Safety Report 5688791-3 (Version None)
Quarter: 2008Q1

REPORT INFORMATION
  Report Type: 
  Country: None (occurrence: None)
  Receive Date: 20080331
  Receipt Date: 20080319
  Transmission Date: 20080703
  Serious: Yes (Life-Threatening)
  Sender: FDA-Public Use
  Company Number: IT-ROCHE-554045

PATIENT
  Age: 66 Year
  Sex: Male

DRUGS (6)
  1. ROCEPHIN [Suspect]
     Indication: PROPHYLAXIS
     Dosage: FORM REPORTED AS VIAL. DOSE REPORTED AS ^2 G X DAY^.
     Route: 042
     Dates: start: 20080306, end: 20080307
  2. KANRENOL [Concomitant]
     Indication: HEPATIC CIRRHOSIS
     Dosage: ROUTE: OS. DOSAGE REGIMEN: ^3 X UNK^.
     Route: 048
  3. MEGACE [Concomitant]
     Dosage: ROUTE : OS. DOSAGE REGIMEN: ^1 X UNK^.
     Route: 048
  4. PANTORC [Concomitant]
     Indication: PROPHYLAXIS
     Dosage: ROUTE: OS. DOSAGE REGIMEN REPORTED AS ^1 X UNK^.
     Route: 048
  5. CORGARD [Concomitant]
     Indication: PROPHYLAXIS
     Dosage: ROUTE: OS. DOSAGE REGIMEN REPORTED AS ^1 X UNK^.
     Route: 048
  6. LAEVOLAC [Concomitant]
     Dosage: DOSAGE REGIMEN REPORTED AS ^6 DF X UNK^.
     Route: 048

REACTIONS (1)
  - CIRCULATORY COLLAPSE [None]
